FAERS Safety Report 8460526-0 (Version None)
Quarter: 2012Q2

REPORT INFORMATION
  Report Type: 
  Country: None (occurrence: None)
  Receive Date: 20120622
  Receipt Date: 20120615
  Transmission Date: 20120825
  Serious: Yes (Other)
  Sender: FDA-Public Use
  Company Number: FR-ACTELION-A-CH2012-67420

PATIENT
  Age: 40 Year
  Sex: Male

DRUGS (2)
  1. CELLCEPT [Suspect]
  2. TRACLEER [Suspect]
     Indication: DIGITAL ULCER
     Dosage: UNK , UNK
     Route: 048
     Dates: start: 20100101

REACTIONS (1)
  - BRONCHOPULMONARY ASPERGILLOSIS [None]
